FAERS Safety Report 9723514 (Version 1)
Quarter: 2013Q4

REPORT INFORMATION
  Report Type: Spontaneous
  Country: US (occurrence: US)
  Receive Date: 20131202
  Receipt Date: 20131202
  Transmission Date: 20140711
  Serious: No
  Sender: FDA-Public Use
  Company Number: US-BAYER-2013-145050

PATIENT
  Age: 66 Year
  Sex: Male
  Weight: 90.7 kg

DRUGS (10)
  1. ALEVE TABLET [Suspect]
     Indication: ANALGESIC THERAPY
     Dosage: 2 DF, EVERY 12 HOURS
     Route: 048
  2. ALEVE TABLET [Suspect]
     Indication: ANALGESIC THERAPY
     Dosage: 2 DF, EVERY 12 HOURS
     Route: 048
  3. BAYER GENUINE ASPIRIN ORIGINAL STRENGTH [Suspect]
     Indication: ANALGESIC THERAPY
     Route: 048
  4. ZOCOR [Concomitant]
  5. METOPROLOL [Concomitant]
  6. OMEGA 3 FISH OIL [Concomitant]
  7. COQ10 [Concomitant]
  8. CENTRUM [Concomitant]
  9. B-COMPLEX [VITAMIN B NOS] [Concomitant]
  10. ASPIRIN [Concomitant]

REACTIONS (11)
  - Urticaria [Recovering/Resolving]
  - Erythema [Recovering/Resolving]
  - Pruritus [Not Recovered/Not Resolved]
  - Diarrhoea [Not Recovered/Not Resolved]
  - Pruritus [Recovered/Resolved]
  - Urticaria [Recovered/Resolved]
  - Abdominal discomfort [None]
  - Nausea [Recovered/Resolved]
  - Incorrect dosage administered [None]
  - Liver function test abnormal [None]
  - Gastroenteritis viral [None]
